APPROVED DRUG PRODUCT: OMEPRAZOLE MAGNESIUM
Active Ingredient: OMEPRAZOLE MAGNESIUM
Strength: EQ 20MG BASE
Dosage Form/Route: CAPSULE, DELAYED RELEASE;ORAL
Application: A213201 | Product #001
Applicant: AUROBINDO PHARMA LTD
Approved: Apr 28, 2023 | RLD: No | RS: No | Type: DISCN